FAERS Safety Report 15643591 (Version 1)
Quarter: 2018Q4

REPORT INFORMATION
  Report Type: Spontaneous
  Country: US (occurrence: US)
  Receive Date: 20181121
  Receipt Date: 20181121
  Transmission Date: 20190205
  Serious: Yes (Other)
  Sender: FDA-Public Use
  Company Number: US-PFIZER INC-2018476565

PATIENT

DRUGS (1)
  1. PRECEDEX [Suspect]
     Active Substance: DEXMEDETOMIDINE HYDROCHLORIDE
     Dosage: UNK
     Route: 042

REACTIONS (3)
  - Blood pressure abnormal [Unknown]
  - Drug effect incomplete [Unknown]
  - Underdose [Unknown]

NARRATIVE: CASE EVENT DATE: 20181003
